FAERS Safety Report 16911775 (Version 1)
Quarter: 2019Q4

REPORT INFORMATION
  Report Type: Report from Study
  Country: DE (occurrence: DE)
  Receive Date: 20191014
  Receipt Date: 20191014
  Transmission Date: 20200122
  Serious: Yes (Hospitalization, Other)
  Sender: FDA-Public Use
  Company Number: DE-SA-2017SA238165

PATIENT
  Age: 28 Year
  Sex: Female
  Weight: 87 kg

DRUGS (3)
  1. ALEMTUZUMAB [Suspect]
     Active Substance: ALEMTUZUMAB
     Dosage: 12 MG,UNK
     Route: 041
     Dates: start: 20171115, end: 20171117
  2. ALEMTUZUMAB [Suspect]
     Active Substance: ALEMTUZUMAB
     Indication: MULTIPLE SCLEROSIS
     Dosage: 12 MG,UNK
     Route: 041
     Dates: start: 20161123, end: 20161127
  3. PARACETAMOL [Concomitant]
     Active Substance: ACETAMINOPHEN
     Dosage: UNK UNK,UNK
     Route: 065

REACTIONS (11)
  - Ocular hyperaemia [Recovering/Resolving]
  - Hyperthyroidism [Not Recovered/Not Resolved]
  - Hypothyroidism [Unknown]
  - Drug exposure before pregnancy [Unknown]
  - Blood pressure increased [Recovering/Resolving]
  - Headache [Recovering/Resolving]
  - Multiple sclerosis [Unknown]
  - Hyperhidrosis [Not Recovered/Not Resolved]
  - Thyroiditis [Not Recovered/Not Resolved]
  - Rash [Recovered/Resolved]
  - Abdominal pain [Unknown]

NARRATIVE: CASE EVENT DATE: 20171115
